FAERS Safety Report 4511477-5 (Version None)
Quarter: 2004Q4

REPORT INFORMATION
  Report Type: 
  Country: None (occurrence: None)
  Receive Date: 20041129
  Receipt Date: 20040826
  Transmission Date: 20050328
  Serious: Yes (Disabling)
  Sender: FDA-Public Use
  Company Number: US-BRISTOL-MYERS SQUIBB COMPANY-12684676

PATIENT
  Age: 48 Year
  Sex: Male
  Weight: 113 kg

DRUGS (3)
  1. ABILIFY [Suspect]
     Indication: SCHIZOPHRENIA
     Route: 048
     Dates: start: 20040504, end: 20040823
  2. CLOZAPINE [Concomitant]
     Route: 048
  3. DEPAKOTE [Concomitant]

REACTIONS (1)
  - PRIAPISM [None]
